FAERS Safety Report 6386966-1 (Version None)
Quarter: 2009Q4

REPORT INFORMATION
  Report Type: 
  Country: None (occurrence: None)
  Receive Date: 20091002
  Receipt Date: 20090924
  Transmission Date: 20100525
  Serious: Yes (Hospitalization)
  Sender: FDA-Public Use
  Company Number: US-WATSON-2009-07927

PATIENT
  Age: 60 Year
  Sex: Male

DRUGS (1)
  1. CLONAZEPAM [Suspect]
     Indication: POST-TRAUMATIC STRESS DISORDER
     Dosage: 2 MG, TID
     Route: 048

REACTIONS (2)
  - CATATONIA [None]
  - DRUG WITHDRAWAL SYNDROME [None]
